FAERS Safety Report 17337386 (Version 4)
Quarter: 2022Q1

REPORT INFORMATION
  Report Type: Report from Study
  Country: US (occurrence: US)
  Receive Date: 20200129
  Receipt Date: 20220328
  Transmission Date: 20220423
  Serious: No
  Sender: FDA-Public Use
  Company Number: None

PATIENT
  Age: 12 Year
  Sex: Female

DRUGS (3)
  1. ILARIS [Suspect]
     Active Substance: CANAKINUMAB
     Indication: Still^s disease
     Dosage: 0.8 ML, QMO
     Route: 058
     Dates: start: 20180309
  2. ILARIS [Suspect]
     Active Substance: CANAKINUMAB
     Dosage: 0.8 ML
     Route: 065
     Dates: start: 20200215
  3. ILARIS [Suspect]
     Active Substance: CANAKINUMAB
     Dosage: 1.07 ML EVERY 4 WEEKS
     Route: 058

REACTIONS (1)
  - Incorrect dose administered [Unknown]

NARRATIVE: CASE EVENT DATE: 20200111
